FAERS Safety Report 20557226 (Version 6)
Quarter: 2024Q3

REPORT INFORMATION
  Report Type: Spontaneous
  Country: US (occurrence: US)
  Receive Date: 20220307
  Receipt Date: 20240913
  Transmission Date: 20241016
  Serious: Yes (Hospitalization, Disabling, Other)
  Sender: ORGANON
  Company Number: US-ORGANON-O2203USA000330

PATIENT
  Sex: Male
  Weight: 107.94 kg

DRUGS (7)
  1. SINGULAIR [Suspect]
     Active Substance: MONTELUKAST SODIUM
     Indication: Asthma
     Dosage: UNK
     Route: 048
     Dates: start: 2006, end: 2012
  2. SINGULAIR [Suspect]
     Active Substance: MONTELUKAST SODIUM
     Dosage: UNK
     Route: 048
     Dates: start: 2012
  3. SINGULAIR [Suspect]
     Active Substance: MONTELUKAST SODIUM
     Dosage: 10 MILLIGRAM, QD
     Route: 048
     Dates: start: 20170119, end: 20170119
  4. SINGULAIR [Suspect]
     Active Substance: MONTELUKAST SODIUM
     Dosage: UNK
     Route: 048
     Dates: end: 2019
  5. ADDERALL [Concomitant]
     Active Substance: AMPHETAMINE ASPARTATE\AMPHETAMINE SULFATE\DEXTROAMPHETAMINE SACCHARATE\DEXTROAMPHETAMINE SULFATE
     Indication: Mental disorder
     Dosage: UNK
  6. VENTOLIN [Concomitant]
     Active Substance: ALBUTEROL SULFATE
     Indication: Wheezing
     Dosage: 2 PUFFS PRN FOR 6 HRS
     Dates: start: 20170117, end: 20170119
  7. ALBUTEROL [Concomitant]
     Active Substance: ALBUTEROL
     Indication: Wheezing
     Dosage: 1 VIAL FOR 6 HOURS
     Dates: start: 20170117, end: 20170119

REACTIONS (35)
  - Suicide attempt [Unknown]
  - Ear operation [Unknown]
  - Anger [Unknown]
  - Behaviour disorder [Not Recovered/Not Resolved]
  - Psychotic disorder [Unknown]
  - Disruptive mood dysregulation disorder [Unknown]
  - Neuropsychological symptoms [Not Recovered/Not Resolved]
  - Major depression [Not Recovered/Not Resolved]
  - Tic [Not Recovered/Not Resolved]
  - Dysphemia [Not Recovered/Not Resolved]
  - Attention deficit hyperactivity disorder [Not Recovered/Not Resolved]
  - Bipolar disorder [Not Recovered/Not Resolved]
  - Hallucination [Not Recovered/Not Resolved]
  - Psychotic symptom [Unknown]
  - Hallucination, visual [Unknown]
  - Aggression [Unknown]
  - Mental disorder [Unknown]
  - Dyslexia [Unknown]
  - Speech disorder [Unknown]
  - Dysarthria [Unknown]
  - Psychomotor retardation [Unknown]
  - Tachyphrenia [Unknown]
  - Adverse event [Unknown]
  - Social avoidant behaviour [Unknown]
  - Irritability [Unknown]
  - Impulse-control disorder [Unknown]
  - Psychomotor hyperactivity [Unknown]
  - Paranoia [Unknown]
  - Suspiciousness [Unknown]
  - Enuresis [Unknown]
  - Theft [Unknown]
  - Abnormal behaviour [Unknown]
  - Affective disorder [Unknown]
  - Asthma [Unknown]
  - Hypersensitivity [Unknown]

NARRATIVE: CASE EVENT DATE: 20090101
